FAERS Safety Report 8384288-0 (Version None)
Quarter: 2012Q2

REPORT INFORMATION
  Report Type: 
  Country: None (occurrence: None)
  Receive Date: 20120524
  Receipt Date: 20120522
  Transmission Date: 20120825
  Serious: Yes (Death, Hospitalization, Disabling, Other)
  Sender: FDA-Public Use
  Company Number: US-CELGENEUS-163-21880-12020336

PATIENT
  Sex: Female
  Weight: 56.1 kg

DRUGS (9)
  1. MULTI-VITAMINS [Concomitant]
     Route: 065
  2. LEVOTHYROXINE SODIUM [Concomitant]
     Dosage: 100 MICROGRAM
     Route: 065
  3. FOSAMAX [Concomitant]
     Dosage: 70 MILLIGRAM
     Route: 065
  4. LORAZEPAM [Concomitant]
     Dosage: 1 MILLIGRAM
     Route: 065
  5. REVLIMID [Suspect]
     Indication: MYELODYSPLASTIC SYNDROME
     Dosage: 10 MILLIGRAM
     Route: 048
     Dates: start: 20120119, end: 20120124
  6. SIMVASTATIN [Concomitant]
     Dosage: 10 MILLIGRAM
     Route: 065
  7. AMLODIPINE BESYLATE [Concomitant]
     Dosage: 10 MILLIGRAM
     Route: 065
  8. ZIAC [Concomitant]
     Dosage: 2.5 MILLIGRAM
     Route: 065
  9. CALCIUM + VITAMIN D [Concomitant]
     Route: 065

REACTIONS (13)
  - AORTIC ARTERIOSCLEROSIS [None]
  - PNEUMONIA [None]
  - FAILURE TO THRIVE [None]
  - PULMONARY HYPERTENSION [None]
  - MYELODYSPLASTIC SYNDROME TRANSFORMATION [None]
  - ACUTE MYELOID LEUKAEMIA [None]
  - BUNDLE BRANCH BLOCK LEFT [None]
  - VENTRICULAR HYPERTROPHY [None]
  - SUPRAVENTRICULAR EXTRASYSTOLES [None]
  - NEOPLASM PROGRESSION [None]
  - ANAEMIA [None]
  - TRICUSPID VALVE INCOMPETENCE [None]
  - MITRAL VALVE INCOMPETENCE [None]
